FAERS Safety Report 14789117 (Version 1)
Quarter: 2018Q2

REPORT INFORMATION
  Report Type: Spontaneous
  Country: US (occurrence: US)
  Receive Date: 20180413
  Receipt Date: 20180413
  Transmission Date: 20180711
  Serious: Yes (Other)
  Sender: FDA-Public Use
  Company Number: None

PATIENT
  Age: 85 Year
  Sex: Female

DRUGS (1)
  1. AFINITOR [Suspect]
     Active Substance: EVEROLIMUS
     Indication: BREAST CANCER METASTATIC
     Route: 048
     Dates: start: 20180313, end: 20180409

REACTIONS (4)
  - Therapy change [None]
  - Dry mouth [None]
  - Cheilitis [None]
  - Diarrhoea [None]

NARRATIVE: CASE EVENT DATE: 201804
